FAERS Safety Report 21370573 (Version 1)
Quarter: 2022Q3

REPORT INFORMATION
  Report Type: Spontaneous
  Country: US (occurrence: None)
  Receive Date: 20220922
  Receipt Date: 20220922
  Transmission Date: 20221027
  Serious: Yes (Death)
  Sender: FDA-Public Use
  Company Number: None

PATIENT
  Age: 67 Year
  Sex: Female

DRUGS (3)
  1. MYCOPHENOLATE MOFETIL [Suspect]
     Active Substance: MYCOPHENOLATE MOFETIL
     Indication: Lung transplant
     Dosage: 2.5ML EVERY 12 HOURS VIA G-TUBE?
     Route: 050
     Dates: start: 20220820
  2. MYCOPHENOLATE MOFETIL [Suspect]
     Active Substance: MYCOPHENOLATE MOFETIL
     Indication: Idiopathic pulmonary fibrosis
  3. TOBRAMYCIN [Concomitant]
     Active Substance: TOBRAMYCIN

REACTIONS (1)
  - Death [None]

NARRATIVE: CASE EVENT DATE: 20220909
